FAERS Safety Report 8418592-4 (Version None)
Quarter: 2012Q2

REPORT INFORMATION
  Report Type: 
  Country: None (occurrence: None)
  Receive Date: 20120607
  Receipt Date: 20120530
  Transmission Date: 20120825
  Serious: Yes (Other)
  Sender: FDA-Public Use
  Company Number: CA-JNJFOC-20120521410

PATIENT
  Sex: Female
  Weight: 51.71 kg

DRUGS (3)
  1. INTRAUTERINE DEVICE [Concomitant]
     Dosage: DURATION= ^AROUND 18 MONTHS^
  2. MIRENA [Concomitant]
     Dosage: DURATION= ^AROUND 18 MONTHS^
  3. REMICADE [Suspect]
     Indication: CROHN'S DISEASE
     Dates: start: 20070501

REACTIONS (1)
  - PRECANCEROUS CELLS PRESENT [None]
